FAERS Safety Report 8955486 (Version 2)
Quarter: 2013Q2

REPORT INFORMATION
  Report Type: Report from Study
  Country: JP (occurrence: JP)
  Receive Date: 20121210
  Receipt Date: 20130618
  Transmission Date: 20140414
  Serious: Yes (Other)
  Sender: FDA-Public Use
  Company Number: JP-009507513-1212JPN002378

PATIENT
  Age: 51 Year
  Sex: Male
  Weight: 70 kg

DRUGS (16)
  1. PEGINTRON [Suspect]
     Indication: CHRONIC HEPATITIS C
     Dosage: 1.5 MICROGRAM PER KILOGRAM, QW
     Route: 058
     Dates: start: 20120828, end: 20121001
  2. PEGINTRON [Suspect]
     Dosage: 1.5 MICROGRAM PER KILOGRAM, QW
     Route: 058
     Dates: start: 20121022
  3. REBETOL [Suspect]
     Indication: CHRONIC HEPATITIS C
     Dosage: 800 MG, QD
     Route: 048
     Dates: start: 20120828, end: 20120917
  4. REBETOL [Suspect]
     Dosage: 600 MG, QD
     Route: 048
     Dates: start: 20120918, end: 20120923
  5. REBETOL [Suspect]
     Dosage: 200 MG, QD
     Route: 048
     Dates: start: 20120924, end: 20120930
  6. REBETOL [Suspect]
     Dosage: 400 MG, QD
     Route: 048
     Dates: start: 20121022
  7. TELAVIC [Suspect]
     Indication: CHRONIC HEPATITIS C
     Dosage: 2250 MG, QD
     Route: 048
     Dates: start: 20120828, end: 20120930
  8. TELAVIC [Suspect]
     Dosage: 1500 MG, QD
     Route: 048
     Dates: start: 20121022, end: 20121029
  9. LOXONIN [Concomitant]
     Indication: PROPHYLAXIS
     Dosage: 180 MG, QD
     Route: 048
     Dates: start: 20120829, end: 20121111
  10. OMEPRAZOLE [Concomitant]
     Indication: PROPHYLAXIS
     Dosage: 20 MG, PRN, PER DAY
     Route: 048
     Dates: start: 20120829, end: 20120909
  11. ZYLORIC [Concomitant]
     Indication: CHRONIC HEPATITIS C
     Dosage: 200 MG, QD
     Route: 048
     Dates: start: 20120830, end: 20121021
  12. ZYLORIC [Concomitant]
     Dosage: 100 MG, QD
     Route: 048
     Dates: start: 20121022, end: 20121111
  13. NU-LOTAN [Concomitant]
     Indication: HYPERTENSION
     Dosage: 50 MG, QD
     Route: 048
     Dates: start: 20120831, end: 20120906
  14. PRIMPERAN [Concomitant]
     Indication: NAUSEA
     Dosage: 15 MG, QD
     Route: 048
     Dates: start: 20120910, end: 20121008
  15. PRIMPERAN [Concomitant]
     Dosage: 15 MG, QD
     Route: 048
     Dates: start: 20121107, end: 20121113
  16. NEXIUM [Concomitant]
     Indication: PROPHYLAXIS
     Dosage: 20 MG, QD
     Route: 048
     Dates: start: 20120910, end: 20121111

REACTIONS (2)
  - Blood creatine increased [Recovered/Resolved]
  - Blood potassium increased [Recovered/Resolved]
